FAERS Safety Report 5336730-7 (Version None)
Quarter: 2007Q2

REPORT INFORMATION
  Report Type: 
  Country: None (occurrence: None)
  Receive Date: 20070529
  Receipt Date: 20070518
  Transmission Date: 20071010
  Serious: Yes (Hospitalization)
  Sender: FDA-Public Use
  Company Number: PHBS2007JP06716

PATIENT
  Sex: Female

DRUGS (2)
  1. AREDIA [Suspect]
     Indication: METASTASES TO BONE
     Route: 042
     Dates: start: 20040101, end: 20060101
  2. CHEMOTHERAPEUTICS NOS [Concomitant]

REACTIONS (3)
  - LOOSE TOOTH [None]
  - OSTEONECROSIS [None]
  - STOMATITIS [None]
